FAERS Safety Report 9776736 (Version 1)
Quarter: 2013Q4

REPORT INFORMATION
  Report Type: Spontaneous
  Country: US (occurrence: US)
  Receive Date: 20131220
  Receipt Date: 20131220
  Transmission Date: 20140711
  Serious: Yes (Hospitalization)
  Sender: FDA-Public Use
  Company Number: US-B.I. PHARMACEUTICALS,INC./RIDGEFIELD-2013-BI-42821GD

PATIENT
  Age: 62 Year
  Sex: Female

DRUGS (6)
  1. TIOTROPIUM [Suspect]
     Indication: ASTHMA
     Dosage: 18 MCG
  2. PREDNISONE [Suspect]
     Indication: ASTHMA
     Dosage: 60 MG
  3. FLUTICASONE W/SALMETEROL [Suspect]
     Indication: ASTHMA
     Dosage: FLUTICASONE/SALMETEROL 500/50 MCG TWICE DAILY
     Route: 055
  4. ZILEUTON [Suspect]
     Indication: ASTHMA
     Dosage: 2400 MG
  5. LEVALBUTEROL [Suspect]
     Indication: ASTHMA
     Dosage: 45 MCG 13-16 INHALATIONS
     Route: 055
  6. PROTON PUMP INHIBITOR [Concomitant]
     Indication: GASTROOESOPHAGEAL REFLUX DISEASE

REACTIONS (1)
  - Drug ineffective [Unknown]
